FAERS Safety Report 8282426-1 (Version None)
Quarter: 2012Q2

REPORT INFORMATION
  Report Type: 
  Country: None (occurrence: None)
  Receive Date: 20120413
  Receipt Date: 20120410
  Transmission Date: 20120825
  Serious: Yes (Hospitalization, Other)
  Sender: FDA-Public Use
  Company Number: US-SANOFI-AVENTIS-2011SA063497

PATIENT
  Age: 89 Year
  Sex: Female
  Weight: 53 kg

DRUGS (11)
  1. VITAMIN TAB [Concomitant]
  2. ANTIHYPERTENSIVES [Concomitant]
  3. METOPROLOL TARTRATE [Concomitant]
  4. PLAVIX [Suspect]
     Route: 048
     Dates: start: 20080101
  5. PLAVIX [Suspect]
     Route: 048
     Dates: start: 20080101
  6. ASPIRIN [Suspect]
     Dosage: TOOK FOR 27 YEARS
  7. LORAZEPAM [Concomitant]
     Indication: SLEEP DISORDER
  8. ALL OTHER THERAPEUTIC PRODUCTS [Concomitant]
     Indication: MACULAR DEGENERATION
  9. PLAVIX [Suspect]
     Route: 048
     Dates: start: 20080101
  10. LISINOPRIL [Concomitant]
  11. FISH OIL [Concomitant]

REACTIONS (26)
  - FAECAL INCONTINENCE [None]
  - BALANCE DISORDER [None]
  - FALL [None]
  - HAEMORRHAGE [None]
  - OEDEMA PERIPHERAL [None]
  - FATIGUE [None]
  - ARTHRALGIA [None]
  - CEREBROVASCULAR ACCIDENT [None]
  - LYMPHOEDEMA [None]
  - DYSPNOEA [None]
  - CARDIAC DISORDER [None]
  - SKIN DISCOLOURATION [None]
  - POLYURIA [None]
  - RESPIRATORY ARREST [None]
  - WEIGHT INCREASED [None]
  - HYPONATRAEMIA [None]
  - GAIT DISTURBANCE [None]
  - CONTUSION [None]
  - LOSS OF CONSCIOUSNESS [None]
  - OESOPHAGITIS [None]
  - MACULAR DEGENERATION [None]
  - CARDIAC PACEMAKER INSERTION [None]
  - OESOPHAGEAL ULCER [None]
  - SENSATION OF FOREIGN BODY [None]
  - SWELLING [None]
  - EPISTAXIS [None]
